FAERS Safety Report 6371519-1 (Version None)
Quarter: 2009Q3

REPORT INFORMATION
  Report Type: 
  Country: None (occurrence: None)
  Receive Date: 20090923
  Receipt Date: 20071129
  Transmission Date: 20100115
  Serious: Yes (Other)
  Sender: FDA-Public Use
  Company Number: US-ASTRAZENECA-2007UW17996

PATIENT
  Age: 21599 Day
  Sex: Female
  Weight: 54.4 kg

DRUGS (10)
  1. SEROQUEL [Suspect]
     Indication: BIPOLAR DISORDER
     Dosage: 100-300 MG
     Route: 048
     Dates: start: 20051007, end: 20060716
  2. SEROQUEL [Suspect]
     Indication: SLEEP DISORDER
     Dosage: 100-300 MG
     Route: 048
     Dates: start: 20051007, end: 20060716
  3. SEROQUEL [Suspect]
     Dosage: 25 MG - 300 MG
     Route: 048
     Dates: start: 20051007, end: 20060828
  4. SEROQUEL [Suspect]
     Dosage: 25 MG - 300 MG
     Route: 048
     Dates: start: 20051007, end: 20060828
  5. RISPERDAL [Concomitant]
     Dates: start: 20001101
  6. RISPERDAL [Concomitant]
     Dosage: 0.5 MG-2 MG
     Dates: start: 20060714
  7. ZYPREXA [Concomitant]
     Dates: start: 20000321
  8. PROPRANOLOL [Concomitant]
     Indication: ESSENTIAL TREMOR
     Route: 048
     Dates: start: 20001103
  9. ABILIFY [Concomitant]
     Dosage: 15MG 1 QHS, 10 MG Q.H.S
     Route: 048
     Dates: start: 20030829
  10. WELLBUTRIN [Concomitant]
     Indication: BIPOLAR DISORDER
     Dosage: 150 MG ONCE A DAY, 150 MG BID, 450 MG GD
     Route: 048
     Dates: start: 20001103

REACTIONS (3)
  - ABDOMINAL PAIN [None]
  - ABDOMINAL PAIN UPPER [None]
  - PANCREATITIS ACUTE [None]
